FAERS Safety Report 8715806 (Version 3)
Quarter: 2012Q4

REPORT INFORMATION
  Report Type: 
  Country: US (occurrence: US)
  Receive Date: 20120809
  Receipt Date: 20120912
  Transmission Date: 20130627
  Serious: Yes (Hospitalization, Other)
  Sender: FDA-Public Use
  Company Number: US-ELI_LILLY_AND_COMPANY-US201208000295

PATIENT
  Age: 73 None
  Sex: Female

DRUGS (4)
  1. HUMALOG [Suspect]
  2. HUMULIN 30% REGULAR, 70% NPH [Suspect]
     Indication: DIABETES MELLITUS
     Dosage: 28 u, qd
  3. HUMALOG [Suspect]
     Indication: DIABETES MELLITUS
  4. LANTUS [Concomitant]

REACTIONS (12)
  - Myocardial infarction [Unknown]
  - Dyspnoea [Unknown]
  - Post procedural infection [Unknown]
  - Wound [Unknown]
  - Drug ineffective [Unknown]
  - Visual impairment [Unknown]
  - Blood glucose increased [Unknown]
  - Aphonia [Unknown]
  - Oedema peripheral [Unknown]
  - Blood glucose decreased [Unknown]
  - Blood glucose increased [Unknown]
  - Postoperative wound infection [None]
